FAERS Safety Report 21137098 (Version 2)
Quarter: 2022Q3

REPORT INFORMATION
  Report Type: Spontaneous
  Country: US (occurrence: None)
  Receive Date: 20220727
  Receipt Date: 20220816
  Transmission Date: 20221026
  Serious: No
  Sender: FDA-Public Use
  Company Number: 2022A240291

PATIENT
  Age: 25802 Day
  Sex: Female
  Weight: 59 kg

DRUGS (1)
  1. BUDESONIDE\FORMOTEROL\GLYCOPYRRONIUM [Suspect]
     Active Substance: BUDESONIDE\FORMOTEROL\GLYCOPYRRONIUM
     Indication: Chronic obstructive pulmonary disease
     Dosage: 160/7.2/5.0 MCG
     Route: 055
     Dates: start: 2021

REACTIONS (5)
  - Dyspnoea [Unknown]
  - Fatigue [Unknown]
  - Device use issue [Unknown]
  - Wrong technique in device usage process [Unknown]
  - Device malfunction [Unknown]

NARRATIVE: CASE EVENT DATE: 20220628
